FAERS Safety Report 13857511 (Version 4)
Quarter: 2018Q3

REPORT INFORMATION
  Report Type: Spontaneous
  Country: BR (occurrence: BR)
  Receive Date: 20170811
  Receipt Date: 20180704
  Transmission Date: 20181010
  Serious: Yes (Other)
  Sender: FDA-Public Use
  Company Number: BR-ROCHE-1793288

PATIENT
  Age: 36 Year
  Sex: Male
  Weight: 76 kg

DRUGS (4)
  1. ATENOLOL. [Concomitant]
     Active Substance: ATENOLOL
     Indication: CARDIAC DISORDER
  2. RIVOTRIL [Suspect]
     Active Substance: CLONAZEPAM
     Indication: HEART RATE DECREASED
     Dosage: MANUFACTURING DATE: /NOV/2016.
     Route: 065
  3. RIVOTRIL [Suspect]
     Active Substance: CLONAZEPAM
     Indication: CARDIAC DISORDER
     Dosage: 2.5 MG/ML
     Route: 065
  4. ATENOLOL. [Concomitant]
     Active Substance: ATENOLOL
     Indication: TACHYCARDIA

REACTIONS (13)
  - Intentional product use issue [Unknown]
  - Platelet count decreased [Not Recovered/Not Resolved]
  - Headache [Unknown]
  - Wrong technique in product usage process [Unknown]
  - Drug dose omission [Unknown]
  - Bradycardia [Unknown]
  - Fatigue [Not Recovered/Not Resolved]
  - Product dropper issue [Unknown]
  - Off label use [Unknown]
  - Dengue fever [Unknown]
  - Nausea [Unknown]
  - Hand fracture [Unknown]
  - Wrong dose [Unknown]

NARRATIVE: CASE EVENT DATE: 201702
